FAERS Safety Report 18152437 (Version 3)
Quarter: 2021Q1

REPORT INFORMATION
  Report Type: Spontaneous
  Country: US (occurrence: US)
  Receive Date: 20200814
  Receipt Date: 20210112
  Transmission Date: 20210419
  Serious: Yes (Hospitalization, Other)
  Sender: FDA-Public Use
  Company Number: US-ASTRAZENECA-2020SF00941

PATIENT
  Age: 19473 Day
  Sex: Female
  Weight: 42.6 kg

DRUGS (105)
  1. OMEPRAZOLE. [Suspect]
     Active Substance: OMEPRAZOLE
     Indication: GASTROOESOPHAGEAL REFLUX DISEASE
     Dosage: GENERIC
     Route: 065
     Dates: start: 201004, end: 201612
  2. PREVACID [Suspect]
     Active Substance: LANSOPRAZOLE
     Indication: GASTROOESOPHAGEAL REFLUX DISEASE
     Route: 065
     Dates: start: 200601, end: 201002
  3. PREVACID [Suspect]
     Active Substance: LANSOPRAZOLE
     Indication: GASTROOESOPHAGEAL REFLUX DISEASE
     Route: 065
     Dates: start: 20201209
  4. AMOXICILLIN. [Concomitant]
     Active Substance: AMOXICILLIN
  5. AVELOX [Concomitant]
     Active Substance: MOXIFLOXACIN HYDROCHLORIDE
  6. MAGNESIUM [Concomitant]
     Active Substance: MAGNESIUM
  7. LOSARTAN POTASSIUM. [Concomitant]
     Active Substance: LOSARTAN POTASSIUM
     Route: 065
     Dates: start: 20200911
  8. ACETAMINOPHEN. [Concomitant]
     Active Substance: ACETAMINOPHEN
  9. DILAUDID [Concomitant]
     Active Substance: HYDROMORPHONE HYDROCHLORIDE
  10. NIACIN. [Concomitant]
     Active Substance: NIACIN
  11. TOPAMAX [Concomitant]
     Active Substance: TOPIRAMATE
  12. HEPARIN [Concomitant]
     Active Substance: HEPARIN SODIUM
  13. METHYLPREDNISOLONE. [Concomitant]
     Active Substance: METHYLPREDNISOLONE
  14. TETANUS [Concomitant]
     Active Substance: TETANUS ANTITOXIN
  15. ATROPINE/HYOSCYAMINE/PB/SCOPOLAMINE [Concomitant]
  16. DONNATAL [Concomitant]
     Active Substance: ATROPINE SULFATE\HYOSCYAMINE SULFATE\PHENOBARBITAL\SCOPOLAMINE HYDROBROMIDE
  17. OMEPRAZOLE. [Suspect]
     Active Substance: OMEPRAZOLE
     Indication: GASTROOESOPHAGEAL REFLUX DISEASE
     Dosage: GENERIC CAPSULE
     Route: 065
     Dates: start: 20100401
  18. CRESTOR [Concomitant]
     Active Substance: ROSUVASTATIN CALCIUM
     Indication: BLOOD CHOLESTEROL ABNORMAL
     Dates: start: 200806, end: 201001
  19. WALGREENS [Concomitant]
     Indication: CONSTIPATION
     Dates: start: 2019
  20. PROMETHAZINE [Concomitant]
     Active Substance: PROMETHAZINE HYDROCHLORIDE
  21. WARFARIN [Concomitant]
     Active Substance: WARFARIN
  22. SODIUM CHLORIDE. [Concomitant]
     Active Substance: SODIUM CHLORIDE
  23. MORPHINE [Concomitant]
     Active Substance: MORPHINE
  24. NIFEDIPINE. [Concomitant]
     Active Substance: NIFEDIPINE
     Route: 065
     Dates: start: 20200911
  25. PRAVACHOL [Concomitant]
     Active Substance: PRAVASTATIN SODIUM
  26. METOPROLOL TARTRATE. [Concomitant]
     Active Substance: METOPROLOL TARTRATE
  27. VITAMIN B COMPLEX [Concomitant]
     Active Substance: CYANOCOBALAMIN\DEXPANTHENOL\NIACINAMIDE\PYRIDOXINE HYDROCHLORIDE\RIBOFLAVIN 5^-PHOSPHATE SODIUM\THIAMINE HYDROCHLORIDE\VITAMIN B COMPLEX
  28. TOPAL [Concomitant]
     Active Substance: ALGINIC ACID\ALUMINUM HYDROXIDE\MAGNESIUM CARBONATE
  29. MELATONIN [Concomitant]
     Active Substance: MELATONIN
  30. AUGMENTIN [Concomitant]
     Active Substance: AMOXICILLIN\CLAVULANATE POTASSIUM
  31. ARFORMOTEROL [Concomitant]
     Active Substance: ARFORMOTEROL
  32. SCOPOLAMINE [Concomitant]
     Active Substance: SCOPOLAMINE
  33. HYOSCYAMINE. [Concomitant]
     Active Substance: HYOSCYAMINE
  34. ACYCLOVIR. [Concomitant]
     Active Substance: ACYCLOVIR
  35. BUPROPION. [Concomitant]
     Active Substance: BUPROPION
     Indication: AFFECTIVE DISORDER
     Dates: start: 200602, end: 200904
  36. PLAVIX [Concomitant]
     Active Substance: CLOPIDOGREL BISULFATE
     Indication: BLOOD DISORDER
     Dates: start: 200601, end: 201708
  37. KETOROLAC [Concomitant]
     Active Substance: KETOROLAC TROMETHAMINE
     Indication: PAIN
     Dates: start: 200605
  38. TRAMADOL. [Concomitant]
     Active Substance: TRAMADOL
  39. CELEBREX [Concomitant]
     Active Substance: CELECOXIB
  40. CLOPIDOGREL [Concomitant]
     Active Substance: CLOPIDOGREL BISULFATE
  41. STATIN [Concomitant]
     Active Substance: UNSPECIFIED INGREDIENT
  42. PRAVASTATIN. [Concomitant]
     Active Substance: PRAVASTATIN
  43. MAALOX ANTACID [Concomitant]
     Active Substance: ALUMINUM HYDROXIDE\DIMETHICONE\MAGNESIUM HYDROXIDE
  44. PROVENTIL [Concomitant]
     Active Substance: ALBUTEROL
  45. AZTREONAM. [Concomitant]
     Active Substance: AZTREONAM
  46. OMEPRAZOLE. [Suspect]
     Active Substance: OMEPRAZOLE
     Indication: GASTROOESOPHAGEAL REFLUX DISEASE
     Dosage: GENERIC CAPSULE
     Route: 065
     Dates: start: 20150216
  47. LOVAZA [Concomitant]
     Active Substance: OMEGA-3-ACID ETHYL ESTERS
     Indication: SUPPLEMENTATION THERAPY
     Dates: start: 200802, end: 201004
  48. ONE?A?DAY VITACRAVES [Concomitant]
     Indication: MULTI-VITAMIN DEFICIENCY
     Dates: start: 2015
  49. PREDNISONE. [Concomitant]
     Active Substance: PREDNISONE
  50. SULFAMETHOXAZOLE [Concomitant]
     Active Substance: SULFAMETHOXAZOLE
  51. NITROGLYCERIN. [Concomitant]
     Active Substance: NITROGLYCERIN
  52. LOSARTAN. [Concomitant]
     Active Substance: LOSARTAN
  53. SALMETEROL [Concomitant]
     Active Substance: SALMETEROL
  54. APRESOLINE HYDROCHLORIDE [Concomitant]
     Active Substance: HYDRALAZINE HYDROCHLORIDE
  55. MUCINEX [Concomitant]
     Active Substance: GUAIFENESIN
  56. TAMIFLU [Concomitant]
     Active Substance: OSELTAMIVIR PHOSPHATE
  57. OMEPRAZOLE. [Suspect]
     Active Substance: OMEPRAZOLE
     Indication: GASTROOESOPHAGEAL REFLUX DISEASE
     Dosage: GENERIC CAPSULE
     Route: 065
     Dates: start: 20170321
  58. OMEPRAZOLE. [Suspect]
     Active Substance: OMEPRAZOLE
     Indication: GASTROOESOPHAGEAL REFLUX DISEASE
     Dosage: GENERIC
     Route: 065
  59. ADVAIR HFA [Concomitant]
     Active Substance: FLUTICASONE PROPIONATE\SALMETEROL XINAFOATE
     Indication: RESPIRATORY DISORDER
     Dates: start: 200901, end: 201708
  60. SPIRIVA [Concomitant]
     Active Substance: TIOTROPIUM BROMIDE MONOHYDRATE
     Indication: RESPIRATORY DISORDER
     Dates: start: 2010, end: 2020
  61. CHERATUSSIN [Concomitant]
     Active Substance: AMMONIUM CHLORIDE\DEXTROMETHORPHAN\SODIUM CITRATE
  62. DIOVAN [Concomitant]
     Active Substance: VALSARTAN
     Route: 065
     Dates: start: 20110509
  63. ATROVENT [Concomitant]
     Active Substance: IPRATROPIUM BROMIDE
  64. KAYEXALATE [Concomitant]
     Active Substance: SODIUM POLYSTYRENE SULFONATE
  65. BROVANA [Concomitant]
     Active Substance: ARFORMOTEROL TARTRATE
  66. FERRITIN [Concomitant]
     Active Substance: FERRITIN
  67. IRON [Concomitant]
     Active Substance: IRON
  68. OMEPRAZOLE. [Suspect]
     Active Substance: OMEPRAZOLE
     Indication: GASTROOESOPHAGEAL REFLUX DISEASE
     Dosage: GENERIC CAPSULE
     Route: 065
     Dates: start: 20110324
  69. PREVACID [Suspect]
     Active Substance: LANSOPRAZOLE
     Indication: GASTROOESOPHAGEAL REFLUX DISEASE
     Route: 065
     Dates: start: 20081208
  70. METOPROLOL. [Concomitant]
     Active Substance: METOPROLOL
     Indication: BLOOD PRESSURE ABNORMAL
     Dates: start: 200601, end: 201708
  71. ENALAPRIL [Concomitant]
     Active Substance: ENALAPRIL
     Indication: BLOOD PRESSURE ABNORMAL
     Dates: start: 200601, end: 200707
  72. CYCLOBENZAPRINE. [Concomitant]
     Active Substance: CYCLOBENZAPRINE
     Indication: MUSCLE RELAXANT THERAPY
     Dates: start: 200811, end: 201510
  73. MIRALAX [Concomitant]
     Active Substance: POLYETHYLENE GLYCOL 3350
     Indication: CONSTIPATION
     Dates: start: 2019
  74. PROAIR?ALBUTEROL [Concomitant]
     Indication: RESPIRATORY DISORDER
     Dates: start: 2010, end: 2020
  75. ONDANSETRON [Concomitant]
     Active Substance: ONDANSETRON
  76. DARVOCET [Concomitant]
     Active Substance: ACETAMINOPHEN\PROPOXYPHENE HYDROCHLORIDE
  77. ASPIRIN. [Concomitant]
     Active Substance: ASPIRIN
  78. CENTRUM SILVER [Concomitant]
     Active Substance: MINERALS\VITAMINS
  79. COLACE [Concomitant]
     Active Substance: DOCUSATE SODIUM
     Route: 065
     Dates: start: 20200911
  80. ZOLPIDEM [Concomitant]
     Active Substance: ZOLPIDEM TARTRATE
  81. MAGNESIUM OXIDE. [Concomitant]
     Active Substance: MAGNESIUM OXIDE
  82. METOPROLOL SUCCINATE. [Concomitant]
     Active Substance: METOPROLOL SUCCINATE
  83. HYDRALAZINE [Concomitant]
     Active Substance: HYDRALAZINE HYDROCHLORIDE
  84. ENOXAPARIN [Concomitant]
     Active Substance: ENOXAPARIN
  85. RANITIDINE. [Concomitant]
     Active Substance: RANITIDINE
  86. UNASYN [Concomitant]
     Active Substance: AMPICILLIN SODIUM\SULBACTAM SODIUM
  87. OMEPRAZOLE. [Suspect]
     Active Substance: OMEPRAZOLE
     Indication: GASTROOESOPHAGEAL REFLUX DISEASE
     Dosage: GENERIC CAPSULE
     Route: 065
     Dates: start: 20160309
  88. OMEPRAZOLE. [Suspect]
     Active Substance: OMEPRAZOLE
     Indication: GASTROOESOPHAGEAL REFLUX DISEASE
     Dosage: GENERIC CAPSULE
     Route: 065
     Dates: start: 20130228
  89. OMEPRAZOLE. [Suspect]
     Active Substance: OMEPRAZOLE
     Indication: GASTROOESOPHAGEAL REFLUX DISEASE
     Dosage: GENERIC
     Route: 065
     Dates: start: 20201209
  90. OMEPRAZOLE. [Suspect]
     Active Substance: OMEPRAZOLE
     Indication: GASTROOESOPHAGEAL REFLUX DISEASE
     Dosage: GENERIC
     Route: 065
     Dates: start: 20101220
  91. DIOVAN HCT [Concomitant]
     Active Substance: HYDROCHLOROTHIAZIDE\VALSARTAN
     Indication: BLOOD PRESSURE ABNORMAL
     Dates: start: 200804, end: 201706
  92. SIMVASTATIN. [Concomitant]
     Active Substance: SIMVASTATIN
  93. CEFTRIAXONE. [Concomitant]
     Active Substance: CEFTRIAXONE
  94. MEGESTROL [Concomitant]
     Active Substance: MEGESTROL
  95. SIMETHICONE (DIMETHICONE) [Concomitant]
     Active Substance: DIMETHICONE
  96. PULMICORT TURBUHALER [Concomitant]
     Active Substance: BUDESONIDE
  97. TESSALON [Concomitant]
     Active Substance: BENZONATATE
  98. VYTORIN [Concomitant]
     Active Substance: EZETIMIBE\SIMVASTATIN
     Indication: BLOOD CHOLESTEROL ABNORMAL
     Dates: start: 200601, end: 200806
  99. AMLODIPINE [Concomitant]
     Active Substance: AMLODIPINE BESYLATE
  100. COMBIVENT [Concomitant]
     Active Substance: ALBUTEROL SULFATE\IPRATROPIUM BROMIDE
  101. ZITHROMAX [Concomitant]
     Active Substance: AZITHROMYCIN DIHYDRATE
     Dates: start: 20070331
  102. LOVENOX [Concomitant]
     Active Substance: ENOXAPARIN SODIUM
  103. DICYCLOMINE [Concomitant]
     Active Substance: DICYCLOMINE HYDROCHLORIDE
  104. VIBRAMYCIN [Concomitant]
     Active Substance: DOXYCYCLINE
  105. MAGNESIUM HYDROXIDE. [Concomitant]
     Active Substance: MAGNESIUM HYDROXIDE

REACTIONS (6)
  - Acute kidney injury [Unknown]
  - Renal impairment [Unknown]
  - Hyperparathyroidism secondary [Unknown]
  - Renal tubular necrosis [Unknown]
  - Chronic kidney disease [Not Recovered/Not Resolved]
  - Renal failure [Unknown]

NARRATIVE: CASE EVENT DATE: 20090620
